FAERS Safety Report 16594435 (Version 1)
Quarter: 2019Q3

REPORT INFORMATION
  Report Type: Spontaneous
  Country: US (occurrence: US)
  Receive Date: 20190718
  Receipt Date: 20190718
  Transmission Date: 20191004
  Serious: Yes (Hospitalization)
  Sender: FDA-Public Use
  Company Number: US-VERTEX PHARMACEUTICALS-2019-006507

PATIENT
  Age: 26 Year
  Sex: Female

DRUGS (20)
  1. CITALOPRAM [Concomitant]
     Active Substance: CITALOPRAM HYDROBROMIDE
  2. VITAMIN D [COLECALCIFEROL] [Concomitant]
     Active Substance: CHOLECALCIFEROL
  3. PROAIR HFA [Concomitant]
     Active Substance: ALBUTEROL SULFATE
  4. VITAMIN E [Concomitant]
     Active Substance: .ALPHA.-TOCOPHEROL
  5. PULMOZYME [Concomitant]
     Active Substance: DORNASE ALFA
  6. TRULANCE [Concomitant]
     Active Substance: PLECANATIDE
  7. BISACODYL. [Concomitant]
     Active Substance: BISACODYL
  8. OMEPRAZOLE. [Concomitant]
     Active Substance: OMEPRAZOLE
  9. URSODIOL. [Concomitant]
     Active Substance: URSODIOL
  10. SUCRALFATE. [Concomitant]
     Active Substance: SUCRALFATE
  11. HUMALOG [Concomitant]
     Active Substance: INSULIN LISPRO
  12. MEPHYTON [Concomitant]
     Active Substance: PHYTONADIONE
  13. DOCUSATE SODIUM. [Concomitant]
     Active Substance: DOCUSATE SODIUM
  14. SYMDEKO [Suspect]
     Active Substance: IVACAFTOR\TEZACAFTOR
     Indication: CYSTIC FIBROSIS
     Dosage: 100 MG TEZACAFTOR/ 150 MG IVACAFTOR AM; 150 MG IVACAFTOR PM
     Route: 048
     Dates: start: 20180514
  15. RANITIDINE. [Concomitant]
     Active Substance: RANITIDINE
  16. ZENPEP [Concomitant]
     Active Substance: PANCRELIPASE AMYLASE\PANCRELIPASE LIPASE\PANCRELIPASE PROTEASE
  17. CETRIZINE [Concomitant]
     Active Substance: CETIRIZINE HYDROCHLORIDE
  18. AMITIZA [Concomitant]
     Active Substance: LUBIPROSTONE
  19. ADVAIR HFA [Concomitant]
     Active Substance: FLUTICASONE PROPIONATE\SALMETEROL XINAFOATE
  20. FLUTICASONE. [Concomitant]
     Active Substance: FLUTICASONE
     Route: 045

REACTIONS (1)
  - Pulmonary oedema [Unknown]

NARRATIVE: CASE EVENT DATE: 20190708
